FAERS Safety Report 10037339 (Version 1)
Quarter: 2014Q1

REPORT INFORMATION
  Report Type: Spontaneous
  Country: US (occurrence: None)
  Receive Date: 20140325
  Receipt Date: 20140325
  Transmission Date: 20141002
  Serious: Yes (Disabling)
  Sender: FDA-Public Use
  Company Number: None

PATIENT
  Age: 42 Year
  Sex: Female
  Weight: 68.04 kg

DRUGS (1)
  1. LEXAPRO [Suspect]
     Indication: DEPRESSION
     Dosage: ONCE A DAY, ONCE DAILY, TAKEN BY MOUTH
     Route: 048
     Dates: start: 20140324

REACTIONS (2)
  - Suicidal ideation [None]
  - Product substitution issue [None]
